FAERS Safety Report 5688171-0 (Version None)
Quarter: 2008Q1

REPORT INFORMATION
  Report Type: 
  Country: None (occurrence: None)
  Receive Date: 20080327
  Receipt Date: 20080314
  Transmission Date: 20080703
  Serious: Yes (Death, Other)
  Sender: FDA-Public Use
  Company Number: GXKR2008GB02675

PATIENT
  Age: 73 Year
  Sex: Female

DRUGS (7)
  1. LEFLUNOMIDE [Suspect]
     Indication: RHEUMATOID ARTHRITIS
  2. CYCLOSPORINE [Suspect]
     Indication: RHEUMATOID ARTHRITIS
  3. METHOTREXATE [Suspect]
     Indication: RHEUMATOID ARTHRITIS
  4. PREDNISOLONE [Suspect]
     Indication: RHEUMATOID ARTHRITIS
     Dosage: 2.5-5 MG QD, ORAL
     Route: 048
     Dates: start: 20000101, end: 20010101
  5. STEROIDS NOS(NO INGREDIENTS/SUBSTANCES) [Suspect]
     Indication: RHEUMATOID ARTHRITIS
     Dosage: SEVERAL INJECTIONS, INTRAMUSCULAR; INTRAMUSCULAR
     Route: 030
     Dates: start: 20000101, end: 20020101
  6. STEROIDS NOS(NO INGREDIENTS/SUBSTANCES) [Suspect]
     Indication: RHEUMATOID ARTHRITIS
     Dosage: SEVERAL INJECTIONS, INTRAMUSCULAR; INTRAMUSCULAR
     Route: 030
     Dates: start: 20020101
  7. SULFASALAZINE [Concomitant]

REACTIONS (18)
  - ANAEMIA [None]
  - BRONCHOPNEUMONIA [None]
  - CARDIAC FAILURE [None]
  - CHRONIC OBSTRUCTIVE PULMONARY DISEASE [None]
  - CYTOMEGALOVIRUS INFECTION [None]
  - ELECTROCARDIOGRAM P PULMONALE [None]
  - FATIGUE [None]
  - GENERAL PHYSICAL HEALTH DETERIORATION [None]
  - HEPATIC FUNCTION ABNORMAL [None]
  - LEUKOPENIA [None]
  - METASTATIC NEOPLASM [None]
  - OEDEMA PERIPHERAL [None]
  - ORTHOPNOEA [None]
  - PANCREATITIS ACUTE [None]
  - PNEUMOCYSTIS JIROVECI PNEUMONIA [None]
  - RENAL CELL CARCINOMA [None]
  - RHEUMATOID LUNG [None]
  - TUBERCULOSIS [None]
